FAERS Safety Report 12912958 (Version 3)
Quarter: 2016Q4

REPORT INFORMATION
  Report Type: Spontaneous
  Country: IT (occurrence: IT)
  Receive Date: 20161104
  Receipt Date: 20161115
  Transmission Date: 20170207
  Serious: Yes (Other)
  Sender: FDA-Public Use
  Company Number: IT-PFIZER INC-2016511696

PATIENT
  Age: 51 Year
  Sex: Female

DRUGS (3)
  1. AMISULPRIDE [Concomitant]
     Active Substance: AMISULPRIDE
     Dosage: ^TOTAL^
     Route: 048
     Dates: start: 20160210, end: 20160210
  2. ALPRAZOLAM. [Suspect]
     Active Substance: ALPRAZOLAM
     Dosage: ^TOTAL^
     Route: 048
  3. LORMETAZEPAM [Concomitant]
     Active Substance: LORMETAZEPAM
     Dosage: ^TOTAL^
     Route: 048
     Dates: start: 20160210, end: 20160210

REACTIONS (4)
  - Apathy [Recovered/Resolved]
  - Drug abuse [Recovered/Resolved]
  - Panic attack [Recovered/Resolved]
  - Crying [Recovered/Resolved]

NARRATIVE: CASE EVENT DATE: 20160210
